FAERS Safety Report 4637713-2 (Version None)
Quarter: 2005Q2

REPORT INFORMATION
  Report Type: 
  Country: None (occurrence: None)
  Receive Date: 20050418
  Receipt Date: 20050408
  Transmission Date: 20051028
  Serious: Yes (Hospitalization)
  Sender: FDA-Public Use
  Company Number: FR-AMGEN-US126548

PATIENT
  Sex: Male
  Weight: 78 kg

DRUGS (7)
  1. STEMGEN [Suspect]
     Indication: PERIPHERAL BLOOD STEM CELL APHERESIS
     Route: 058
     Dates: start: 20050301, end: 20050302
  2. NEUPOGEN [Suspect]
     Route: 058
     Dates: start: 20030301, end: 20030303
  3. LANSOPRAZOLE [Concomitant]
     Route: 048
     Dates: start: 20030228
  4. SALBUTAMOL [Concomitant]
     Dates: start: 20030303, end: 20030303
  5. RANITIDINE [Concomitant]
     Route: 048
     Dates: start: 20030301, end: 20030303
  6. CETIRIZINE HCL [Concomitant]
     Route: 048
     Dates: start: 20030301, end: 20030303
  7. LEVODOPA [Concomitant]
     Route: 048
     Dates: start: 20030228

REACTIONS (1)
  - ANGIONEUROTIC OEDEMA [None]
